FAERS Safety Report 6786675-0 (Version None)
Quarter: 2010Q2

REPORT INFORMATION
  Report Type: 
  Country: None (occurrence: None)
  Receive Date: 20100623
  Receipt Date: 20100614
  Transmission Date: 20101027
  Serious: Yes (Other)
  Sender: FDA-Public Use
  Company Number: US-PFIZER INC-2010074749

PATIENT
  Sex: Male

DRUGS (2)
  1. SOLU-MEDROL [Suspect]
     Dosage: UNK
  2. GLIBENCLAMIDE [Suspect]
     Dosage: UNK

REACTIONS (2)
  - BLOOD GLUCOSE INCREASED [None]
  - ERYTHEMA [None]
